FAERS Safety Report 16018799 (Version 2)
Quarter: 2019Q2

REPORT INFORMATION
  Report Type: Spontaneous
  Country: US (occurrence: US)
  Receive Date: 20190228
  Receipt Date: 20190422
  Transmission Date: 20190711
  Serious: No
  Sender: FDA-Public Use
  Company Number: US-SA-2019SA055183

PATIENT
  Age: 57 Year
  Sex: Female

DRUGS (1)
  1. ALIROCUMAB [Suspect]
     Active Substance: ALIROCUMAB
     Dosage: 75 MG, 1X
     Route: 058
     Dates: start: 20190214, end: 20190214

REACTIONS (3)
  - Accidental exposure to product [Unknown]
  - Injection site swelling [Unknown]
  - Device use issue [Unknown]
